FAERS Safety Report 4367052-9 (Version None)
Quarter: 2004Q2

REPORT INFORMATION
  Report Type: 
  Country: None (occurrence: None)
  Receive Date: 20040528
  Receipt Date: 20040519
  Transmission Date: 20050107
  Serious: Yes (Other)
  Sender: FDA-Public Use
  Company Number: SK-JNJFOC-20040504586

PATIENT
  Sex: Male

DRUGS (2)
  1. TRAMAL [Suspect]
     Route: 030
  2. NOVALGIN [Concomitant]

REACTIONS (4)
  - APHASIA [None]
  - ASTHENIA [None]
  - DYSARTHRIA [None]
  - VOMITING [None]
